FAERS Safety Report 9258682 (Version 2)
Quarter: 2013Q2

REPORT INFORMATION
  Report Type: Spontaneous
  Country: DE (occurrence: DE)
  Receive Date: 20130426
  Receipt Date: 20130618
  Transmission Date: 20140414
  Serious: Yes (Other)
  Sender: FDA-Public Use
  Company Number: DE-GALDERMA-DE13001261

PATIENT
  Age: 62 Year
  Sex: Male

DRUGS (2)
  1. ORAYCEA [Suspect]
     Indication: ROSACEA
     Route: 048
     Dates: start: 2013
  2. ORAYCEA [Suspect]
     Route: 048
     Dates: start: 20130412

REACTIONS (3)
  - Hypertension [Recovered/Resolved]
  - Vision blurred [Recovered/Resolved]
  - Off label use [Unknown]
